FAERS Safety Report 18589898 (Version 1)
Quarter: 2020Q4

REPORT INFORMATION
  Report Type: Spontaneous
  Country: US (occurrence: US)
  Receive Date: 20201207
  Receipt Date: 20201207
  Transmission Date: 20210114
  Serious: Yes (Other)
  Sender: FDA-Public Use
  Company Number: None

PATIENT
  Age: 65 Year
  Sex: Female
  Weight: 49.5 kg

DRUGS (3)
  1. RECLAST [Suspect]
     Active Substance: ZOLEDRONIC ACID
     Indication: OSTEOPOROSIS
     Dosage: ?          QUANTITY:1 INJECTION(S);OTHER FREQUENCY:ONCE ONLY;?
     Route: 042
  2. ESTRACE [Concomitant]
     Active Substance: ESTRADIOL
  3. CENTRUM FOR WOMEN}50 [Concomitant]

REACTIONS (5)
  - Gait inability [None]
  - Peripheral swelling [None]
  - Pain [None]
  - Joint swelling [None]
  - Hypokinesia [None]

NARRATIVE: CASE EVENT DATE: 20201111
